FAERS Safety Report 17573435 (Version 2)
Quarter: 2020Q3

REPORT INFORMATION
  Report Type: Spontaneous
  Country: US (occurrence: US)
  Receive Date: 20200323
  Receipt Date: 20200714
  Transmission Date: 20201102
  Serious: Yes (Other)
  Sender: FDA-Public Use
  Company Number: US-PURDUE PHARMA-USA-2020-0150472

PATIENT
  Age: 48 Year
  Sex: Female

DRUGS (2)
  1. OXYCODONE HCL CR TABLETS (SIMILAR TO NDA 22?272) [Suspect]
     Active Substance: OXYCODONE HYDROCHLORIDE
     Indication: PRODUCT USED FOR UNKNOWN INDICATION
     Route: 048
  2. OXYCONTIN [Suspect]
     Active Substance: OXYCODONE HYDROCHLORIDE
     Indication: SPINAL OPERATION
     Dosage: UNK
     Route: 048
     Dates: start: 2003

REACTIONS (11)
  - Hypothyroidism [Unknown]
  - Intervertebral disc degeneration [Unknown]
  - Sciatica [Unknown]
  - Renal disorder [Unknown]
  - Renal injury [Unknown]
  - Intervertebral disc protrusion [Unknown]
  - Blood urea increased [Unknown]
  - Thyroid mass [Unknown]
  - Urinary tract infection [Unknown]
  - Goitre [Unknown]
  - Anxiety [Unknown]

NARRATIVE: CASE EVENT DATE: 2005
